FAERS Safety Report 17127328 (Version 1)
Quarter: 2019Q4

REPORT INFORMATION
  Report Type: Spontaneous
  Country: US (occurrence: US)
  Receive Date: 20191209
  Receipt Date: 20191209
  Transmission Date: 20200122
  Serious: No
  Sender: FDA-Public Use
  Company Number: US-TEVA-2019-US-1149863

PATIENT

DRUGS (1)
  1. ALBUTEROL SULFATE HFA,90 MCG [Suspect]
     Active Substance: ALBUTEROL SULFATE
     Indication: ASTHMA
     Route: 065

REACTIONS (3)
  - Wheezing [Unknown]
  - Dyspnoea [Unknown]
  - Device malfunction [Unknown]
